FAERS Safety Report 19643895 (Version 1)
Quarter: 2021Q3

REPORT INFORMATION
  Report Type: Spontaneous
  Country: SK (occurrence: SK)
  Receive Date: 20210730
  Receipt Date: 20210730
  Transmission Date: 20211014
  Serious: Yes (Other)
  Sender: FDA-Public Use
  Company Number: SK-BAXTER-2021BAX022432

PATIENT
  Age: 76 Year
  Sex: Female

DRUGS (4)
  1. PLASMALYTE [Suspect]
     Active Substance: ELECTROLYTES NOS
     Indication: URINARY TRACT INFECTION
     Route: 042
     Dates: start: 202105, end: 202105
  2. CEFTAZIDIME. [Suspect]
     Active Substance: CEFTAZIDIME
     Indication: URINARY TRACT INFECTION
     Route: 042
     Dates: start: 202105, end: 202105
  3. CEFTAZIDIME. [Suspect]
     Active Substance: CEFTAZIDIME
     Indication: DEHYDRATION
     Dosage: DOSE?REINTRODUCED
     Route: 042
  4. PLASMALYTE [Suspect]
     Active Substance: ELECTROLYTES NOS
     Indication: DEHYDRATION

REACTIONS (1)
  - Bronchospasm [Recovered/Resolved]

NARRATIVE: CASE EVENT DATE: 202105
